FAERS Safety Report 14116201 (Version 4)
Quarter: 2017Q4

REPORT INFORMATION
  Report Type: Spontaneous
  Country: JP (occurrence: JP)
  Receive Date: 20171023
  Receipt Date: 20171212
  Transmission Date: 20180321
  Serious: Yes (Death, Hospitalization, Other)
  Sender: FDA-Public Use
  Company Number: JP-SA-2017SA203594

PATIENT
  Age: 58 Year
  Sex: Male
  Weight: 77 kg

DRUGS (10)
  1. IRINOTECAN [Concomitant]
     Active Substance: IRINOTECAN
     Indication: RECTAL CANCER RECURRENT
     Route: 042
     Dates: start: 2017, end: 2017
  2. LEVOFOLINATE [Concomitant]
     Active Substance: LEVOLEUCOVORIN CALCIUM
     Indication: RECTAL CANCER RECURRENT
     Route: 042
     Dates: start: 20171002, end: 20171002
  3. IRINOTECAN [Concomitant]
     Active Substance: IRINOTECAN
     Indication: RECTAL CANCER RECURRENT
     Route: 042
     Dates: start: 20171017, end: 20171017
  4. LEVOFOLINATE [Concomitant]
     Active Substance: LEVOLEUCOVORIN CALCIUM
     Indication: RECTAL CANCER RECURRENT
     Route: 042
     Dates: start: 20170911, end: 20170911
  5. ZALTRAP [Suspect]
     Active Substance: ZIV-AFLIBERCEPT
     Indication: RECTAL CANCER RECURRENT
     Route: 042
     Dates: start: 20170911, end: 20170911
  6. LEVOFOLINATE [Concomitant]
     Active Substance: LEVOLEUCOVORIN CALCIUM
     Indication: RECTAL CANCER RECURRENT
     Route: 042
     Dates: start: 20170821, end: 20170821
  7. ZALTRAP [Suspect]
     Active Substance: ZIV-AFLIBERCEPT
     Indication: RECTAL CANCER RECURRENT
     Route: 042
     Dates: start: 20171002, end: 20171002
  8. FLUOROURACIL. [Concomitant]
     Active Substance: FLUOROURACIL
     Indication: RECTAL CANCER RECURRENT
     Dosage: DOSE: 700 MG +?4000 MG,
     Route: 042
     Dates: start: 2017, end: 2017
  9. ZALTRAP [Suspect]
     Active Substance: ZIV-AFLIBERCEPT
     Indication: RECTAL CANCER RECURRENT
     Route: 042
     Dates: start: 20170821, end: 20170821
  10. FLUOROURACIL. [Concomitant]
     Active Substance: FLUOROURACIL
     Indication: RECTAL CANCER RECURRENT
     Dosage: DOSE: 700 MG +?4000 MG,
     Route: 042
     Dates: start: 20171017, end: 20171017

REACTIONS (10)
  - Volume blood decreased [Unknown]
  - Blood creatine phosphokinase increased [Unknown]
  - Sinus tachycardia [Unknown]
  - Acute kidney injury [Fatal]
  - Dehydration [Unknown]
  - Altered state of consciousness [Unknown]
  - Hypotension [Unknown]
  - Respiratory failure [Fatal]
  - Respiratory arrest [Fatal]
  - Blood creatinine increased [Unknown]

NARRATIVE: CASE EVENT DATE: 20171016
